FAERS Safety Report 4943644-0 (Version None)
Quarter: 2006Q1

REPORT INFORMATION
  Report Type: 
  Country: None (occurrence: None)
  Receive Date: 20060314
  Receipt Date: 20051021
  Transmission Date: 20060701
  Serious: Yes (Death, Hospitalization)
  Sender: FDA-Public Use
  Company Number: US-MERCK-0510USA08811

PATIENT
  Age: 78 Year
  Sex: Female
  Weight: 39 kg

DRUGS (5)
  1. VIOXX [Suspect]
     Indication: ARTHRITIS
     Route: 048
     Dates: start: 19990101, end: 20001201
  2. LOTENSIN [Concomitant]
     Indication: HYPERTENSION
     Route: 065
  3. ZANTAC [Concomitant]
     Indication: GASTRIC DISORDER
     Route: 065
  4. AMITRIPTYLINE HYDROCHLORIDE [Concomitant]
     Route: 065
  5. FLEXERIL [Concomitant]
     Indication: BACK PAIN
     Route: 065

REACTIONS (12)
  - ATRIAL FIBRILLATION [None]
  - CEREBROVASCULAR ACCIDENT [None]
  - CHRONIC OBSTRUCTIVE PULMONARY DISEASE [None]
  - DEPRESSION [None]
  - DIZZINESS [None]
  - DRUG HYPERSENSITIVITY [None]
  - DYSARTHRIA [None]
  - GASTRIC DISORDER [None]
  - HAEMATOCHEZIA [None]
  - HYPOTHYROIDISM [None]
  - INTRACRANIAL ANEURYSM [None]
  - LOSS OF CONSCIOUSNESS [None]
